FAERS Safety Report 11483221 (Version 1)
Quarter: 2015Q3

REPORT INFORMATION
  Report Type: Spontaneous
  Country: US (occurrence: US)
  Receive Date: 20150903
  Receipt Date: 20150903
  Transmission Date: 20151125
  Serious: No
  Sender: FDA-Public Use
  Company Number: US-ELI_LILLY_AND_COMPANY-US201206002141

PATIENT
  Age: 33 Year
  Sex: Female

DRUGS (2)
  1. IBUPROFEN. [Concomitant]
     Active Substance: IBUPROFEN
  2. CYMBALTA [Suspect]
     Active Substance: DULOXETINE HYDROCHLORIDE
     Indication: FIBROMYALGIA
     Dosage: 60 MG, QD
     Dates: start: 201202

REACTIONS (4)
  - Dry skin [Recovered/Resolved]
  - Rash pruritic [Recovered/Resolved]
  - Lacrimation increased [Unknown]
  - Abdominal pain upper [Unknown]
